FAERS Safety Report 8609516-5 (Version None)
Quarter: 2012Q3

REPORT INFORMATION
  Report Type: 
  Country: None (occurrence: None)
  Receive Date: 20120821
  Receipt Date: 20120814
  Transmission Date: 20120928
  Serious: Yes (Other)
  Sender: FDA-Public Use
  Company Number: US-PFIZER INC-2012093208

PATIENT
  Age: 52 Year
  Sex: Female

DRUGS (6)
  1. PHENOBARBITAL [Concomitant]
     Indication: CONVULSION
     Dosage: UNK
     Dates: start: 20110519
  2. DILANTIN-125 [Suspect]
     Indication: CONVULSION
     Dosage: UNK
     Route: 048
     Dates: start: 20060101
  3. BUSPIRONE [Concomitant]
     Indication: ANXIETY
     Dosage: 10 MG, 2X/DAY
     Dates: start: 20110113
  4. DILANTIN-125 [Suspect]
     Dosage: 100 MG, 2X/DAY
     Route: 048
  5. NEURONTIN [Suspect]
     Dosage: UNK
  6. MOBIC [Concomitant]
     Indication: BACK PAIN
     Dosage: 15 MG, DAILY
     Dates: start: 20110217

REACTIONS (7)
  - GRAND MAL CONVULSION [None]
  - CONVULSION [None]
  - TOXICITY TO VARIOUS AGENTS [None]
  - POSTICTAL HEADACHE [None]
  - LOSS OF CONSCIOUSNESS [None]
  - FALL [None]
  - ANTICONVULSANT DRUG LEVEL INCREASED [None]
